FAERS Safety Report 7166575-7 (Version None)
Quarter: 2010Q4

REPORT INFORMATION
  Report Type: 
  Country: None (occurrence: None)
  Receive Date: 20101216
  Receipt Date: 20101207
  Transmission Date: 20110411
  Serious: Yes (Hospitalization)
  Sender: FDA-Public Use
  Company Number: US-SANOFI-AVENTIS-2010SA075095

PATIENT
  Age: 72 Year
  Sex: Male

DRUGS (2)
  1. MULTAQ [Suspect]
     Indication: ATRIAL FIBRILLATION
     Route: 048
     Dates: start: 20101111
  2. DABIGATRAN ETEXILATE [Suspect]
     Route: 065
     Dates: start: 20101113, end: 20101203

REACTIONS (6)
  - ASTHENIA [None]
  - DYSPNOEA [None]
  - EPISTAXIS [None]
  - FLUID RETENTION [None]
  - HAEMOGLOBIN DECREASED [None]
  - WEIGHT INCREASED [None]
